FAERS Safety Report 7502479-5 (Version None)
Quarter: 2011Q2

REPORT INFORMATION
  Report Type: 
  Country: None (occurrence: None)
  Receive Date: 20110525
  Receipt Date: 20110520
  Transmission Date: 20111010
  Serious: Yes (Other)
  Sender: FDA-Public Use
  Company Number: US-BRISTOL-MYERS SQUIBB COMPANY-15764673

PATIENT

DRUGS (1)
  1. ABILIFY [Suspect]
     Route: 064

REACTIONS (1)
  - METABOLIC SYNDROME [None]
